FAERS Safety Report 11010919 (Version 1)
Quarter: 2015Q2

REPORT INFORMATION
  Report Type: Spontaneous
  Country: FR (occurrence: FR)
  Receive Date: 20150410
  Receipt Date: 20150410
  Transmission Date: 20150821
  Serious: Yes (Hospitalization)
  Sender: FDA-Public Use
  Company Number: FR-ASTRAZENECA-2015SE32867

PATIENT
  Age: 63 Year
  Sex: Female

DRUGS (11)
  1. CORDARONE [Suspect]
     Active Substance: AMIODARONE HYDROCHLORIDE
     Route: 042
     Dates: start: 20141130, end: 20141130
  2. CORDARONE [Suspect]
     Active Substance: AMIODARONE HYDROCHLORIDE
     Route: 048
     Dates: start: 20141201, end: 20141208
  3. LEVETIRACTAM [Suspect]
     Active Substance: LEVETIRACETAM
     Route: 042
     Dates: start: 20141201, end: 20141208
  4. METFORMINE [Concomitant]
     Active Substance: METFORMIN HYDROCHLORIDE
  5. COOLMETEC [Concomitant]
     Active Substance: HYDROCHLOROTHIAZIDE\OLMESARTAN MEDOXOMIL
  6. EZETROL [Concomitant]
     Active Substance: EZETIMIBE
  7. EUPANTOL [Suspect]
     Active Substance: PANTOPRAZOLE SODIUM
     Route: 042
     Dates: start: 20141130, end: 20141209
  8. CRESTOR [Suspect]
     Active Substance: ROSUVASTATIN CALCIUM
     Route: 048
     Dates: end: 20141206
  9. ACICLOVIR MYLAN [Suspect]
     Active Substance: ACYCLOVIR
     Indication: VIRAL INFECTION
     Route: 042
     Dates: start: 20141130, end: 20141214
  10. EUPRESSYL [Concomitant]
     Active Substance: URAPIDIL
  11. VERAPAMIL [Concomitant]
     Active Substance: VERAPAMIL HYDROCHLORIDE

REACTIONS (3)
  - Erythema [Recovered/Resolved]
  - Hepatocellular injury [Recovered/Resolved]
  - Cholestasis [Recovered/Resolved]

NARRATIVE: CASE EVENT DATE: 20141202
